FAERS Safety Report 7831539-4 (Version None)
Quarter: 2011Q4

REPORT INFORMATION
  Report Type: 
  Country: None (occurrence: None)
  Receive Date: 20111021
  Receipt Date: 20111007
  Transmission Date: 20120403
  Serious: Yes (Other)
  Sender: FDA-Public Use
  Company Number: DE-CELGENEUS-062-50794-11101621

PATIENT
  Sex: Male

DRUGS (2)
  1. VIDAZA [Suspect]
  2. VIDAZA [Suspect]
     Route: 050

REACTIONS (1)
  - DIFFUSE LARGE B-CELL LYMPHOMA [None]
